FAERS Safety Report 9722968 (Version 1)
Quarter: 2013Q4

REPORT INFORMATION
  Report Type: Spontaneous
  Country: US (occurrence: None)
  Receive Date: 20131127
  Receipt Date: 20131127
  Transmission Date: 20140711
  Serious: Yes (Life-Threatening, Disabling)
  Sender: FDA-Public Use
  Company Number: None

PATIENT
  Age: 34 Year
  Sex: Male
  Weight: 90.72 kg

DRUGS (2)
  1. PROSCAR [Suspect]
     Indication: ALOPECIA
     Dosage: PROSCAR EVERY OTHER DAY TAKEN BY MOUTH
  2. AVODART [Suspect]
     Indication: ALOPECIA
     Dosage: 1 PILL ONCE A MONTH TAKEN BY MOUTH

REACTIONS (14)
  - Libido decreased [None]
  - Testicular atrophy [None]
  - Memory impairment [None]
  - Anxiety [None]
  - Depression [None]
  - Feeling abnormal [None]
  - Emotional disorder [None]
  - Dysarthria [None]
  - Dysphemia [None]
  - Aphasia [None]
  - Reading disorder [None]
  - Dysgraphia [None]
  - Apathy [None]
  - Suicidal ideation [None]
